FAERS Safety Report 24388594 (Version 1)
Quarter: 2024Q4

REPORT INFORMATION
  Report Type: Spontaneous
  Country: AU (occurrence: AU)
  Receive Date: 20241002
  Receipt Date: 20241002
  Transmission Date: 20250115
  Serious: Yes (Hospitalization)
  Sender: CHEMISCHE FABRIK KREUSSLER
  Company Number: AU-TGA-0000819805

PATIENT
  Age: 55 Year
  Sex: Female

DRUGS (2)
  1. AETHOXYSKLEROL [Suspect]
     Active Substance: POLIDOCANOL
     Indication: Varicose vein
     Route: 042
     Dates: start: 20240903
  2. AETHOXYSKLEROL [Suspect]
     Active Substance: POLIDOCANOL
     Indication: Varicose vein
     Route: 042
     Dates: start: 20240903

REACTIONS (6)
  - Agitation [Unknown]
  - Air embolism [Unknown]
  - Confusional state [Recovering/Resolving]
  - Headache [Unknown]
  - Paraesthesia [Unknown]
  - Vasospasm [Unknown]

NARRATIVE: CASE EVENT DATE: 20240903
